FAERS Safety Report 14120201 (Version 1)
Quarter: 2017Q4

REPORT INFORMATION
  Report Type: Spontaneous
  Country: GB (occurrence: GB)
  Receive Date: 20171024
  Receipt Date: 20171024
  Transmission Date: 20180321
  Serious: Yes (Other)
  Sender: FDA-Public Use
  Company Number: GB-TEVA-816332ACC

PATIENT
  Age: 6 Decade
  Sex: Female
  Weight: 60 kg

DRUGS (1)
  1. GABAPENTIN. [Suspect]
     Active Substance: GABAPENTIN
     Indication: NEURALGIA
     Dosage: 75 MILLIGRAM DAILY;
     Route: 048
     Dates: start: 20150401, end: 20170815

REACTIONS (6)
  - Withdrawal syndrome [Recovering/Resolving]
  - Neuralgia [Unknown]
  - Condition aggravated [Unknown]
  - Insomnia [Unknown]
  - Anxiety [Unknown]
  - Body temperature fluctuation [Unknown]

NARRATIVE: CASE EVENT DATE: 20170815
